FAERS Safety Report 19394559 (Version 1)
Quarter: 2021Q2

REPORT INFORMATION
  Report Type: Spontaneous
  Country: US (occurrence: US)
  Receive Date: 20210609
  Receipt Date: 20210609
  Transmission Date: 20210717
  Serious: No
  Sender: FDA-Public Use
  Company Number: None

PATIENT
  Age: 62 Year
  Sex: Male

DRUGS (1)
  1. VENALAFAXINE (VENLAFAXINE HCL 75MG TAB) [Suspect]
     Active Substance: VENLAFAXINE HYDROCHLORIDE
     Indication: DEPRESSION
     Dates: start: 20200811, end: 20210324

REACTIONS (3)
  - Cognitive disorder [None]
  - Confusional state [None]
  - Sedation [None]

NARRATIVE: CASE EVENT DATE: 20210321
